FAERS Safety Report 14805206 (Version 2)
Quarter: 2018Q2

REPORT INFORMATION
  Report Type: Spontaneous
  Country: US (occurrence: AR)
  Receive Date: 20180425
  Receipt Date: 20180508
  Transmission Date: 20180711
  Serious: Yes (Other)
  Sender: FDA-Public Use
  Company Number: US-SUNOVION-2018SUN001602

PATIENT
  Age: 64 Year
  Sex: Female

DRUGS (3)
  1. INDACATEROL [Suspect]
     Active Substance: INDACATEROL
     Indication: CHRONIC OBSTRUCTIVE PULMONARY DISEASE
     Dosage: 1 DF, QD (150 MG)
     Route: 055
  2. ROSUVASTATIN. [Concomitant]
     Active Substance: ROSUVASTATIN
  3. ANTIHYPERTENSIVES [Concomitant]
     Active Substance: UNSPECIFIED INGREDIENT
     Indication: HYPERTENSION
     Dosage: 80 MG, QD

REACTIONS (12)
  - Road traffic accident [Unknown]
  - Meniscus injury [Unknown]
  - Back pain [Unknown]
  - Macular detachment [Unknown]
  - Visual field defect [Unknown]
  - Tibia fracture [Unknown]
  - Fibula fracture [Unknown]
  - Fracture [Recovered/Resolved]
  - Macular hole [Not Recovered/Not Resolved]
  - Arthralgia [Recovered/Resolved]
  - Cataract [Unknown]
  - Visual impairment [Unknown]

NARRATIVE: CASE EVENT DATE: 2016
